FAERS Safety Report 7296805-2 (Version None)
Quarter: 2011Q1

REPORT INFORMATION
  Report Type: 
  Country: None (occurrence: None)
  Receive Date: 20110216
  Receipt Date: 20110210
  Transmission Date: 20110831
  Serious: Yes (Other)
  Sender: FDA-Public Use
  Company Number: B0700050A

PATIENT
  Sex: Female

DRUGS (8)
  1. FORMOTEROL FUMARATE [Concomitant]
     Dosage: 2PUFF TWICE PER DAY
     Route: 065
  2. ADCAL [Concomitant]
  3. FLIXONASE [Suspect]
     Indication: RHINITIS
     Route: 045
  4. PREDNISOLONE [Suspect]
     Route: 048
  5. ORAL STEROIDS [Concomitant]
  6. ALBUTEROL [Concomitant]
  7. FLIXOTIDE [Suspect]
     Indication: ASTHMA
     Dosage: 1MG TWICE PER DAY
     Route: 055
  8. ALENDRONATE [Concomitant]
     Dosage: 70MG WEEKLY

REACTIONS (3)
  - FATIGUE [None]
  - MALAISE [None]
  - ADRENAL SUPPRESSION [None]
